FAERS Safety Report 19519010 (Version 1)
Quarter: 2021Q3

REPORT INFORMATION
  Report Type: Spontaneous
  Country: US (occurrence: US)
  Receive Date: 20210711
  Receipt Date: 20210711
  Transmission Date: 20211014
  Serious: Yes (Disabling)
  Sender: FDA-Public Use
  Company Number: None

PATIENT
  Age: 27 Year
  Sex: Female
  Weight: 51.75 kg

DRUGS (1)
  1. HYDROCODONE?ACETAMIN [Suspect]
     Active Substance: ACETAMINOPHEN\HYDROCODONE
     Indication: EHLERS-DANLOS SYNDROME
     Dosage: ?          QUANTITY:90 TABLET(S);?
     Route: 048
     Dates: start: 20210611, end: 20210710

REACTIONS (2)
  - Product substitution issue [None]
  - Drug ineffective [None]

NARRATIVE: CASE EVENT DATE: 20210611
